FAERS Safety Report 8435636-4 (Version None)
Quarter: 2012Q2

REPORT INFORMATION
  Report Type: 
  Country: None (occurrence: None)
  Receive Date: 20120614
  Receipt Date: 20120608
  Transmission Date: 20120825
  Serious: Yes (Death, Hospitalization, Other)
  Sender: FDA-Public Use
  Company Number: BE-PFIZER INC-2012139849

PATIENT
  Sex: Female

DRUGS (11)
  1. METHOTREXATE SODIUM [Suspect]
     Indication: METASTATIC CHORIOCARCINOMA
     Dosage: 300 MG/M2 ON DAY 8
     Route: 042
  2. ALLOPURINOL [Concomitant]
     Indication: URATE NEPHROPATHY
     Dosage: 100 MG, 3X/DAY, ON DAYS 8 TO 10
  3. ETOPOSIDE [Suspect]
     Indication: METASTATIC CHORIOCARCINOMA
     Dosage: 150 MG/M2 ON DAY 1
  4. METHOTREXATE SODIUM [Suspect]
     Route: 037
  5. CARBOPLATIN [Suspect]
     Indication: METASTATIC CHORIOCARCINOMA
     Dosage: AT THE EIGHT CYCLE
  6. ETOPOSIDE [Suspect]
     Dosage: 100 MG/M2 ON DAY 8
  7. FOLINIC ACID [Concomitant]
     Dosage: 7.5 MG, 4X/DAY, STARTING 24 HOURS AFTER THE START OF METHOTREXATE INFUSION (DAYS 9-10)
  8. ONDANSETRON [Concomitant]
     Indication: PROPHYLAXIS OF NAUSEA AND VOMITING
     Dosage: 8 MG, UNK
     Route: 042
  9. CISPLATIN [Suspect]
     Indication: METASTATIC CHORIOCARCINOMA
     Dosage: 75 MG/M2 ON DAY 1
     Route: 042
  10. DACTINOMYCIN [Suspect]
     Indication: METASTATIC CHORIOCARCINOMA
     Dosage: 0.5 MG, ON DAY 8
     Route: 042
  11. SOLU-MEDROL [Concomitant]
     Indication: PROPHYLAXIS OF NAUSEA AND VOMITING
     Dosage: 125 MG, UNK
     Route: 042

REACTIONS (5)
  - NEUTROPENIC SEPSIS [None]
  - OTOTOXICITY [None]
  - PANCYTOPENIA [None]
  - SEPTIC EMBOLUS [None]
  - ENDOCARDITIS [None]
